FAERS Safety Report 5226107-7 (Version None)
Quarter: 2007Q1

REPORT INFORMATION
  Report Type: 
  Country: None (occurrence: None)
  Receive Date: 20070201
  Receipt Date: 20070130
  Transmission Date: 20070707
  Serious: Yes (Other)
  Sender: FDA-Public Use
  Company Number: US-GLAXOSMITHKLINE-A0632602A

PATIENT
  Age: 77 Year
  Sex: Female
  Weight: 59.1 kg

DRUGS (2)
  1. PAXIL CR [Suspect]
     Indication: DRUG USE FOR UNKNOWN INDICATION
     Route: 048
  2. AMBIEN [Suspect]
     Dosage: 6.25MG TWICE PER DAY
     Route: 048

REACTIONS (5)
  - AMNESIA [None]
  - BALANCE DISORDER [None]
  - FALL [None]
  - HALLUCINATION [None]
  - PAIN [None]
